FAERS Safety Report 5040130-7 (Version None)
Quarter: 2006Q2

REPORT INFORMATION
  Report Type: 
  Country: None (occurrence: None)
  Receive Date: 20060601
  Receipt Date: 20060313
  Transmission Date: 20061013
  Serious: No
  Sender: FDA-Public Use
  Company Number: 2006PV007035

PATIENT
  Age: 43 Year
  Sex: Female
  Weight: 89.3586 kg

DRUGS (5)
  1. BYETTA [Suspect]
     Indication: DIABETES MELLITUS NON-INSULIN-DEPENDENT
     Dosage: SEE IMAGE
     Route: 058
     Dates: start: 20060213, end: 20060314
  2. BYETTA [Suspect]
     Indication: DIABETES MELLITUS NON-INSULIN-DEPENDENT
     Dosage: SEE IMAGE
     Route: 058
     Dates: start: 20060315
  3. NOVOLIN R [Concomitant]
  4. ISOPHANE INSULIN [Concomitant]
  5. REGULAR INSULIN [Concomitant]

REACTIONS (9)
  - BLINDNESS TRANSIENT [None]
  - BLOOD GLUCOSE DECREASED [None]
  - INJECTION SITE ERYTHEMA [None]
  - INJECTION SITE HAEMORRHAGE [None]
  - INJECTION SITE IRRITATION [None]
  - INJECTION SITE NODULE [None]
  - PAROSMIA [None]
  - VISUAL DISTURBANCE [None]
  - WEIGHT DECREASED [None]
